FAERS Safety Report 15340767 (Version 1)
Quarter: 2018Q3

REPORT INFORMATION
  Report Type: Spontaneous
  Country: US (occurrence: US)
  Receive Date: 20180827
  Receipt Date: 20180827
  Transmission Date: 20181010
  Serious: Yes (Other)
  Sender: FDA-Public Use
  Company Number: None

PATIENT
  Sex: Female

DRUGS (1)
  1. HEPARIN [Suspect]
     Active Substance: HEPARIN SODIUM
     Indication: CATHETER MANAGEMENT
     Dosage: ?OTHER STRENGTH:100UNITS/ML;OTHER DOSE:USE 1 TO 5 FLUSHES;OTHER FREQUENCY:TO FLUSH IV CATHET;OTHER ROUTE:VIA PORT?
     Route: 042
     Dates: end: 20180803

REACTIONS (3)
  - Paraesthesia [None]
  - Chest pain [None]
  - Hot flush [None]
